FAERS Safety Report 5340949-9 (Version None)
Quarter: 2007Q2

REPORT INFORMATION
  Report Type: 
  Country: None (occurrence: None)
  Receive Date: 20070531
  Receipt Date: 20070530
  Transmission Date: 20071010
  Serious: Yes (Life-Threatening, Hospitalization)
  Sender: FDA-Public Use
  Company Number: PHRM2007FR01285

PATIENT
  Age: 65 Year
  Sex: Female
  Weight: 51 kg

DRUGS (16)
  1. LASIX [Concomitant]
     Dosage: 60 MG/DAY
     Route: 048
     Dates: end: 20070219
  2. ESIDRIX [Suspect]
     Indication: HYPERTENSION
     Dosage: 25 MG, QD
     Route: 048
     Dates: start: 20070214, end: 20070219
  3. CELLCEPT [Concomitant]
  4. CORTANCYL [Concomitant]
  5. CARDENSIEL [Concomitant]
  6. TRIATEC [Concomitant]
  7. COZAAR [Concomitant]
  8. LEVOTHYROXINE SODIUM [Concomitant]
  9. MEDIATOR [Concomitant]
  10. OMEPRAZOLE [Concomitant]
  11. PLAVIX [Concomitant]
  12. FOSAMAX [Concomitant]
  13. PROGRAF [Concomitant]
  14. DI-ANTALVIC [Concomitant]
  15. NOROXIN [Concomitant]
  16. INSULIN [Concomitant]

REACTIONS (11)
  - ANOREXIA [None]
  - ASTHENIA [None]
  - BLOOD CREATININE INCREASED [None]
  - BRADYCARDIA [None]
  - CONDITION AGGRAVATED [None]
  - HYPOKALAEMIA [None]
  - HYPONATRAEMIA [None]
  - LOSS OF CONSCIOUSNESS [None]
  - MALAISE [None]
  - NAUSEA [None]
  - RENAL IMPAIRMENT [None]
